FAERS Safety Report 19472835 (Version 1)
Quarter: 2021Q2

REPORT INFORMATION
  Report Type: Other
  Country: CN (occurrence: CN)
  Receive Date: 20210629
  Receipt Date: 20210629
  Transmission Date: 20210717
  Serious: Yes (Hospitalization)
  Sender: FDA-Public Use
  Company Number: CN-ROCHE-2852210

PATIENT
  Age: 69 Year
  Sex: Male
  Weight: 63 kg

DRUGS (1)
  1. AVASTIN [Suspect]
     Active Substance: BEVACIZUMAB
     Indication: RECTAL CANCER
     Route: 041
     Dates: start: 20160621

REACTIONS (4)
  - Blood test abnormal [Unknown]
  - Fall [Unknown]
  - Abdominal injury [Unknown]
  - Chest pain [Unknown]

NARRATIVE: CASE EVENT DATE: 202106
